FAERS Safety Report 5768531-X (Version None)
Quarter: 2008Q2

REPORT INFORMATION
  Report Type: 
  Country: None (occurrence: None)
  Receive Date: 20080612
  Receipt Date: 20080423
  Transmission Date: 20081010
  Serious: No
  Sender: FDA-Public Use
  Company Number: US-ABBOTT-08P-163-0441412-00

PATIENT
  Sex: Male
  Weight: 86.26 kg

DRUGS (16)
  1. HUMIRA [Suspect]
     Indication: PSORIASIS
     Route: 058
     Dates: start: 20080110, end: 20080110
  2. HUMIRA [Suspect]
     Route: 058
     Dates: start: 20080207, end: 20080207
  3. HUMIRA [Suspect]
     Route: 058
     Dates: start: 20080220, end: 20080220
  4. CARVEDILOL [Concomitant]
     Indication: HYPERTENSION
     Route: 048
  5. FOLIC ACID [Concomitant]
     Indication: PSORIASIS
     Route: 048
  6. HYDROXYZINE [Concomitant]
     Indication: PSORIASIS
     Route: 048
  7. TOPICAL CREAMS (MANY) [Concomitant]
     Indication: PSORIASIS
     Route: 061
  8. METFORMIN HCL [Concomitant]
     Indication: DIABETES MELLITUS
     Route: 048
  9. LANTUS [Concomitant]
     Indication: DIABETES MELLITUS
     Route: 048
  10. ZOCOR [Concomitant]
     Indication: BLOOD CHOLESTEROL INCREASED
     Route: 048
  11. MORNIFLUMATE [Concomitant]
     Indication: PROSTATOMEGALY
     Route: 048
  12. METHOTREXATE [Concomitant]
     Indication: PSORIASIS
     Route: 050
  13. ASPIRIN [Concomitant]
     Indication: CARDIOVASCULAR EVENT PROPHYLAXIS
     Route: 048
  14. AMYL [Concomitant]
     Indication: DRUG USE FOR UNKNOWN INDICATION
     Route: 048
  15. DICYCLOVERINE [Concomitant]
     Indication: IRRITABLE BOWEL SYNDROME
     Route: 048
  16. ULTRA VIOLET LIGHT THERAPY [Concomitant]
     Indication: PSORIASIS
     Route: 048

REACTIONS (3)
  - INFLUENZA [None]
  - RETINAL VEIN THROMBOSIS [None]
  - VISUAL DISTURBANCE [None]
